FAERS Safety Report 7581185-5 (Version None)
Quarter: 2011Q2

REPORT INFORMATION
  Report Type: 
  Country: None (occurrence: None)
  Receive Date: 20110629
  Receipt Date: 20110623
  Transmission Date: 20111010
  Serious: Yes (Death)
  Sender: FDA-Public Use
  Company Number: US-CELGENEUS-163-21880-11063184

PATIENT
  Sex: Female

DRUGS (7)
  1. PRILOSEC [Concomitant]
     Route: 065
  2. FENTANYL [Concomitant]
     Route: 065
  3. CODEINE SUL TAB [Concomitant]
     Route: 065
  4. DEXAMETHASONE [Concomitant]
     Route: 065
  5. REVLIMID [Suspect]
     Dosage: 25 MILLIGRAM
     Route: 048
     Dates: start: 20110509, end: 20110101
  6. GLYBURIDE (MICRONIZED) [Concomitant]
     Route: 065
  7. TYLENOL COLD MULTI-SYMPTOM DAY [Concomitant]
     Route: 065

REACTIONS (1)
  - DEATH [None]
